FAERS Safety Report 18200771 (Version 5)
Quarter: 2021Q3

REPORT INFORMATION
  Report Type: Report from Study
  Country: US (occurrence: US)
  Receive Date: 20200827
  Receipt Date: 20210917
  Transmission Date: 20211014
  Serious: Yes (Hospitalization, Other)
  Sender: FDA-Public Use
  Company Number: US-AMGEN-USASP2020136814

PATIENT
  Age: 71 Year
  Sex: Female

DRUGS (4)
  1. REPATHA [Suspect]
     Active Substance: EVOLOCUMAB
     Indication: BLOOD CHOLESTEROL INCREASED
     Dosage: UNK
     Route: 065
     Dates: start: 20200821
  2. REPATHA [Suspect]
     Active Substance: EVOLOCUMAB
     Indication: TYPE IIA HYPERLIPIDAEMIA
     Dosage: 140 MILLIGRAM, QMO
     Route: 065
     Dates: start: 2020
  3. REPATHA [Suspect]
     Active Substance: EVOLOCUMAB
     Indication: HYPERCHOLESTEROLAEMIA
     Dosage: 140 MILLIGRAM, Q2WK
     Route: 065
  4. BABY ASPIRIN [Concomitant]
     Active Substance: ASPIRIN

REACTIONS (11)
  - Hypersensitivity [Recovering/Resolving]
  - Injection site bruising [Unknown]
  - Blood calcium increased [Unknown]
  - Device difficult to use [Unknown]
  - Device use error [Unknown]
  - Pancreatic cyst [Unknown]
  - Blood cholesterol increased [Unknown]
  - Nephrolithiasis [Recovering/Resolving]
  - Accidental exposure to product [Unknown]
  - Drug dose omission by device [Unknown]
  - Diverticulum [Recovered/Resolved]

NARRATIVE: CASE EVENT DATE: 2020
